FAERS Safety Report 16209405 (Version 1)
Quarter: 2019Q2

REPORT INFORMATION
  Report Type: Spontaneous
  Country: IT (occurrence: IT)
  Receive Date: 20190417
  Receipt Date: 20190417
  Transmission Date: 20190711
  Serious: Yes (Other)
  Sender: FDA-Public Use
  Company Number: IT-OTSUKA-2019_011616

PATIENT
  Age: 63 Year
  Sex: Male

DRUGS (2)
  1. BUSILVEX [Suspect]
     Active Substance: BUSULFAN
     Indication: STEM CELL TRANSPLANT
     Dosage: 200 MG FOR 2 DAYS
     Route: 042
     Dates: start: 20120707, end: 20120709
  2. FLUDARABINE [Suspect]
     Active Substance: FLUDARABINE PHOSPHATE
     Indication: STEM CELL TRANSPLANT
     Dosage: 100 (UNITS UNKNOWN, FOR 1 DAY)
     Route: 042
     Dates: start: 20120704, end: 20120709

REACTIONS (1)
  - Hypothyroidism [Not Recovered/Not Resolved]

NARRATIVE: CASE EVENT DATE: 20121217
